FAERS Safety Report 13230710 (Version 1)
Quarter: 2017Q1

REPORT INFORMATION
  Report Type: Other
  Country: GB (occurrence: GB)
  Receive Date: 20170214
  Receipt Date: 20170214
  Transmission Date: 20170428
  Serious: Yes (Hospitalization, Other)
  Sender: FDA-Public Use
  Company Number: GB-SEPTODONT-201703849

PATIENT
  Age: 44 Year
  Sex: Female

DRUGS (1)
  1. LIGNOCAINE WITH ADRENALINE 1/80.000 [Suspect]
     Active Substance: EPINEPHRINE BITARTRATE\LIDOCAINE HYDROCHLORIDE
     Indication: LOCAL ANAESTHESIA
     Dosage: 0.5 ML ADMINISTERED AS A PALATAL INFILTRATION + 1.7 ML AS A BUCCAL INFILTRATION
     Route: 004
     Dates: start: 20141003

REACTIONS (5)
  - Mucosal necrosis [Unknown]
  - Post procedural complication [None]
  - Injection site vesicles [Unknown]
  - Post-traumatic neuralgia [Unknown]
  - Palatal ulcer [Unknown]
